FAERS Safety Report 9406568 (Version 1)
Quarter: 2013Q3

REPORT INFORMATION
  Report Type: Spontaneous
  Country: RS (occurrence: RS)
  Receive Date: 20130718
  Receipt Date: 20130718
  Transmission Date: 20140515
  Serious: Yes (Hospitalization)
  Sender: FDA-Public Use
  Company Number: RS-MERCK-1307SRB005451

PATIENT
  Age: 17 Year
  Sex: Male
  Weight: 60 kg

DRUGS (5)
  1. ASENAPINE MALEATE [Suspect]
     Indication: SCHIZOPHRENIA
     Dosage: 2.5 MG, BID
     Route: 060
     Dates: start: 201202
  2. LORAZEPAM [Concomitant]
     Dosage: UNK
  3. IBUPROFEN [Concomitant]
     Dosage: UNK
  4. SULPIRIDE [Concomitant]
     Dosage: UNK
  5. CLOZAPINE [Concomitant]
     Dosage: UNK

REACTIONS (9)
  - High density lipoprotein decreased [Unknown]
  - Very low density lipoprotein decreased [Unknown]
  - Blood cholesterol decreased [Unknown]
  - Granulocyte count increased [Unknown]
  - Red blood cell count increased [Unknown]
  - Condition aggravated [Unknown]
  - Insomnia [Unknown]
  - C-reactive protein increased [Unknown]
  - Schizophrenia [Unknown]
